FAERS Safety Report 7442163-X (Version None)
Quarter: 2011Q2

REPORT INFORMATION
  Report Type: 
  Country: None (occurrence: None)
  Receive Date: 20110428
  Receipt Date: 20110425
  Transmission Date: 20111010
  Serious: Yes (Life-Threatening)
  Sender: FDA-Public Use
  Company Number: PHHY2011US32693

PATIENT
  Sex: Female

DRUGS (14)
  1. RECLAST [Suspect]
     Indication: OSTEOPOROSIS
     Dosage: 5 MG
     Route: 042
     Dates: start: 20100602
  2. LIPITOR [Concomitant]
  3. DOXAZOSIN [Concomitant]
  4. M.V.I. [Concomitant]
  5. ATENOLOL [Concomitant]
  6. ASPIRIN [Concomitant]
  7. NORVASC [Concomitant]
  8. CELEBREX [Concomitant]
  9. CALCIUM W/VITAMIN D NOS [Concomitant]
  10. GLIMEPIRIDE [Concomitant]
  11. LASIX [Concomitant]
  12. PRILOSEC [Concomitant]
  13. TRAMADOL [Concomitant]
  14. LISINOPRIL [Concomitant]

REACTIONS (3)
  - GENERAL PHYSICAL HEALTH DETERIORATION [None]
  - ERYTHEMA [None]
  - MALAISE [None]
